FAERS Safety Report 11173656 (Version 1)
Quarter: 2015Q2

REPORT INFORMATION
  Report Type: Report from Study
  Country: US (occurrence: US)
  Receive Date: 20150609
  Receipt Date: 20150609
  Transmission Date: 20150821
  Serious: Yes (Hospitalization, Other)
  Sender: FDA-Public Use
  Company Number: US-GILEAD-2015-0152971

PATIENT
  Age: 32 Year
  Sex: Female

DRUGS (4)
  1. WARFARIN [Concomitant]
     Active Substance: WARFARIN
  2. REVATIO [Concomitant]
     Active Substance: SILDENAFIL CITRATE
  3. AMBRISENTAN [Suspect]
     Active Substance: AMBRISENTAN
     Indication: PULMONARY ARTERIAL HYPERTENSION
     Dosage: 10 MG, QD
     Route: 065
     Dates: start: 20140505
  4. VELETRI [Concomitant]
     Active Substance: EPOPROSTENOL

REACTIONS (7)
  - Infusion site rash [Unknown]
  - Infusion site swelling [Recovering/Resolving]
  - Heart rate abnormal [Unknown]
  - Oxygen saturation decreased [Unknown]
  - Infusion site pain [Unknown]
  - Infusion site discharge [Unknown]
  - Pyrexia [Unknown]

NARRATIVE: CASE EVENT DATE: 20150601
